FAERS Safety Report 4805828-1 (Version None)
Quarter: 2005Q4

REPORT INFORMATION
  Report Type: 
  Country: None (occurrence: None)
  Receive Date: 20051021
  Receipt Date: 20051010
  Transmission Date: 20060501
  Serious: Yes (Death, Hospitalization)
  Sender: FDA-Public Use
  Company Number: FR-JNJFOC-20051003254

PATIENT
  Age: 94 Year
  Sex: Female

DRUGS (9)
  1. TOPALGIC [Suspect]
     Indication: PAIN
     Route: 048
  2. NORSET [Concomitant]
     Route: 048
  3. PREVISCAN [Concomitant]
     Route: 048
  4. SECTRAL [Concomitant]
     Route: 048
  5. LEXOMIL [Concomitant]
     Route: 048
  6. LEVOTHYROX [Concomitant]
     Route: 048
  7. MOPRAL [Concomitant]
     Route: 065
  8. FUROSEMIDE [Concomitant]
     Route: 065
  9. IMOVANE [Concomitant]
     Route: 048

REACTIONS (7)
  - CONFUSIONAL STATE [None]
  - DISTURBANCE IN ATTENTION [None]
  - FALL [None]
  - LOCKED-IN SYNDROME [None]
  - PYREXIA [None]
  - RESPIRATORY ACIDOSIS [None]
  - SEPSIS [None]
